FAERS Safety Report 9429203 (Version 1)
Quarter: 2013Q3

REPORT INFORMATION
  Report Type: Spontaneous
  Country: US (occurrence: US)
  Receive Date: 20130730
  Receipt Date: 20130730
  Transmission Date: 20140515
  Serious: Yes (Other)
  Sender: FDA-Public Use
  Company Number: US-UCBSA-092820

PATIENT
  Sex: 0

DRUGS (3)
  1. CIMZIA [Suspect]
     Indication: CROHN^S DISEASE
  2. REMICADE [Suspect]
     Indication: CROHN^S DISEASE
     Dosage: RECOMBINANT
     Route: 042
  3. HUMIRA [Suspect]
     Indication: CROHN^S DISEASE

REACTIONS (1)
  - Infectious mononucleosis [Unknown]
